FAERS Safety Report 9958551 (Version 2)
Quarter: 2014Q1

REPORT INFORMATION
  Report Type: Spontaneous
  Country: US (occurrence: US)
  Receive Date: 20140305
  Receipt Date: 20140305
  Transmission Date: 20141002
  Serious: Yes (Hospitalization, Other)
  Sender: FDA-Public Use
  Company Number: US-AMGEN-KDL099816

PATIENT
  Age: 53 Year
  Sex: Female

DRUGS (2)
  1. ENBREL [Suspect]
     Indication: RHEUMATOID ARTHRITIS
     Dosage: UNK MG, QWK
     Route: 065
     Dates: start: 20040618, end: 201310
  2. METHOTREXATE [Concomitant]
     Dosage: 15 MG, QWK
     Dates: start: 20040201

REACTIONS (12)
  - Road traffic accident [Recovered/Resolved]
  - Renal impairment [Unknown]
  - Oropharyngeal pain [Not Recovered/Not Resolved]
  - Rotator cuff syndrome [Unknown]
  - Impaired healing [Not Recovered/Not Resolved]
  - Immune system disorder [Not Recovered/Not Resolved]
  - Respiratory tract congestion [Not Recovered/Not Resolved]
  - Throat irritation [Not Recovered/Not Resolved]
  - Cough [Not Recovered/Not Resolved]
  - Fatigue [Not Recovered/Not Resolved]
  - Nasopharyngitis [Not Recovered/Not Resolved]
  - Upper respiratory tract infection [Not Recovered/Not Resolved]
